FAERS Safety Report 8517798-3 (Version None)
Quarter: 2012Q3

REPORT INFORMATION
  Report Type: 
  Country: None (occurrence: None)
  Receive Date: 20120718
  Receipt Date: 20120716
  Transmission Date: 20120928
  Serious: Yes (Other)
  Sender: FDA-Public Use
  Company Number: US-PFIZER INC-2012145045

PATIENT
  Sex: Female

DRUGS (1)
  1. LYRICA [Suspect]
     Indication: NERVOUS SYSTEM DISORDER
     Dosage: UNK

REACTIONS (7)
  - LIMB DISCOMFORT [None]
  - SPINAL DISORDER [None]
  - BURNING SENSATION [None]
  - NERVOUS SYSTEM DISORDER [None]
  - RESTLESS LEGS SYNDROME [None]
  - BACK DISORDER [None]
  - INSOMNIA [None]
